FAERS Safety Report 25534909 (Version 1)
Quarter: 2025Q3

REPORT INFORMATION
  Report Type: Report from Study
  Country: EU (occurrence: EU)
  Receive Date: 20250709
  Receipt Date: 20250709
  Transmission Date: 20251021
  Serious: Yes (Death)
  Sender: BAYER HEALTHCARE PHARMACEUTICALS INC.
  Company Number: EU-BAYER-2025A090341

PATIENT
  Age: 71 Year
  Sex: Male

DRUGS (1)
  1. BETAFERON [Suspect]
     Active Substance: INTERFERON BETA-1B
     Indication: Multiple sclerosis
     Dosage: 250 ?G, QOD
     Route: 058
     Dates: start: 20061201, end: 20250414

REACTIONS (1)
  - Death [Fatal]

NARRATIVE: CASE EVENT DATE: 20250414
